FAERS Safety Report 25575803 (Version 2)
Quarter: 2025Q3

REPORT INFORMATION
  Report Type: Spontaneous
  Country: EU (occurrence: EU)
  Receive Date: 20250718
  Receipt Date: 20250918
  Transmission Date: 20251020
  Serious: Yes (Other)
  Sender: AUROBINDO
  Company Number: EU-MLMSERVICE-20250528-PI519571-00255-2

PATIENT
  Age: 49 Year
  Sex: Female

DRUGS (8)
  1. PACLITAXEL [Suspect]
     Active Substance: PACLITAXEL
     Indication: HER2 negative breast cancer
     Route: 065
  2. PACLITAXEL [Suspect]
     Active Substance: PACLITAXEL
     Indication: Metastases to liver
  3. PACLITAXEL [Suspect]
     Active Substance: PACLITAXEL
     Indication: Breast cancer metastatic
  4. EVEROLIMUS [Suspect]
     Active Substance: EVEROLIMUS
     Indication: HER2 negative breast cancer
     Route: 065
     Dates: end: 201804
  5. EXEMESTANE [Suspect]
     Active Substance: EXEMESTANE
     Indication: HER2 negative breast cancer
     Route: 065
     Dates: end: 201804
  6. HALAVEN [Suspect]
     Active Substance: ERIBULIN MESYLATE
     Indication: HER2 negative breast cancer
     Route: 065
  7. HALAVEN [Suspect]
     Active Substance: ERIBULIN MESYLATE
     Route: 065
  8. FULVESTRANT [Concomitant]
     Active Substance: FULVESTRANT
     Indication: HER2 negative breast cancer
     Route: 065

REACTIONS (4)
  - Type IV hypersensitivity reaction [Unknown]
  - Palmar-plantar erythrodysaesthesia syndrome [Unknown]
  - Cross sensitivity reaction [Unknown]
  - Drug ineffective [Unknown]
